FAERS Safety Report 15431699 (Version 1)
Quarter: 2018Q3

REPORT INFORMATION
  Report Type: Spontaneous
  Country: RO (occurrence: RO)
  Receive Date: 20180926
  Receipt Date: 20180926
  Transmission Date: 20181010
  Serious: Yes (Other)
  Sender: FDA-Public Use
  Company Number: RO-ASTRAZENECA-2018SF20394

PATIENT
  Age: 50 Year
  Sex: Female

DRUGS (2)
  1. BRILIQUE [Suspect]
     Active Substance: TICAGRELOR
     Route: 048
  2. ASA [Concomitant]
     Active Substance: ASPIRIN

REACTIONS (2)
  - Anaemia [Unknown]
  - Genital haemorrhage [Unknown]
